FAERS Safety Report 4337255-8 (Version None)
Quarter: 2004Q2

REPORT INFORMATION
  Report Type: 
  Country: None (occurrence: None)
  Receive Date: 20040413
  Receipt Date: 20040227
  Transmission Date: 20050107
  Serious: Yes (Other)
  Sender: FDA-Public Use
  Company Number: PHNU2004DE01036

PATIENT
  Age: 70 Year
  Sex: Female

DRUGS (3)
  1. VISKEN [Suspect]
     Indication: BLOOD PRESSURE INCREASED
     Dosage: 15 MG, BID
     Route: 048
     Dates: start: 19820101
  2. PROVAS COMP [Suspect]
     Indication: HYPERTENSION
     Dosage: 1 DF, QD
     Route: 048
     Dates: start: 20030512, end: 20030630
  3. ISO MACK [Concomitant]
     Dosage: UNK, UNK

REACTIONS (3)
  - BLOOD GLUCOSE INCREASED [None]
  - PSORIASIS [None]
  - WEIGHT INCREASED [None]
